FAERS Safety Report 4297982-8 (Version None)
Quarter: 2004Q1

REPORT INFORMATION
  Report Type: 
  Country: None (occurrence: None)
  Receive Date: 20040218
  Receipt Date: 20010122
  Transmission Date: 20041129
  Serious: Yes (Other)
  Sender: FDA-Public Use
  Company Number: US-BRISTOL-MYERS SQUIBB COMPANY-10686996

PATIENT
  Age: 37 Year
  Sex: Male

DRUGS (19)
  1. STADOL [Suspect]
     Indication: PAIN
     Dosage: DOSAGE FORM: 10 MG/ML NASAL SPRAY; DOSAGE:1 SPRAY PRN; 2-5 ML AS DIRECTED.
     Route: 045
  2. PAMELOR [Concomitant]
  3. NEURONTIN [Concomitant]
  4. MOTRIN [Concomitant]
  5. TYLENOL W/ CODEINE NO. 3 [Concomitant]
  6. BACLOFEN [Concomitant]
  7. ZANAFLEX [Concomitant]
  8. BENADRYL [Concomitant]
  9. METHYLPREDNISOLONE [Concomitant]
  10. DEPAKOTE [Concomitant]
  11. WELLBUTRIN [Concomitant]
  12. KLONOPIN [Concomitant]
  13. OXYCONTIN [Concomitant]
  14. ATIVAN [Concomitant]
  15. PERCOCET [Concomitant]
  16. TEGRETOL [Concomitant]
  17. PROZAC [Concomitant]
  18. SYNTHROID [Concomitant]
  19. AMBIEN [Concomitant]

REACTIONS (3)
  - DEPENDENCE [None]
  - DIZZINESS [None]
  - DRUG ADDICT [None]
